FAERS Safety Report 18427132 (Version 3)
Quarter: 2021Q1

REPORT INFORMATION
  Report Type: Spontaneous
  Country: US (occurrence: US)
  Receive Date: 20201026
  Receipt Date: 20210106
  Transmission Date: 20210419
  Serious: No
  Sender: FDA-Public Use
  Company Number: US-PFIZER INC-2018293592

PATIENT
  Age: 5 Year
  Sex: Female

DRUGS (11)
  1. GENOTROPIN [Suspect]
     Active Substance: SOMATROPIN
     Indication: OPTIC NERVE HYPOPLASIA
     Dosage: 1.0 MG, ONCE A DAY AT NIGHT
     Dates: start: 2016
  2. MELATONIN [Concomitant]
     Active Substance: MELATONIN
     Indication: INSOMNIA
     Dosage: 10 MG, AT NIGHT
     Dates: start: 2017
  3. CHILDREN CLARITIN ALLERGY [Concomitant]
     Active Substance: LORATADINE
     Indication: HYPERSENSITIVITY
     Dosage: 1 TEASPOON ONCE A DAY
     Dates: start: 201804
  4. A?HYDROCORT [Concomitant]
     Active Substance: HYDROCORTISONE SODIUM SUCCINATE
     Indication: HORMONE REPLACEMENT THERAPY
     Dosage: 5 MG, TWICE DAILY
     Route: 048
  5. KRISTALOSE [Concomitant]
     Active Substance: LACTULOSE
     Indication: CONSTIPATION
     Dosage: 10 G, ONCE DAILY
     Route: 048
     Dates: start: 201806
  6. LEVOTHYROXINE. [Concomitant]
     Active Substance: LEVOTHYROXINE
     Indication: THYROID DISORDER
     Dosage: 50 UG, ONCE DAILY
     Route: 048
  7. MULTIVITAMIN [Concomitant]
     Active Substance: VITAMINS
     Indication: SUPPLEMENTATION THERAPY
     Dosage: 4 TABLETS (DF), PER DAY
     Dates: start: 201806
  8. DESMOPRESSIN [Concomitant]
     Active Substance: DESMOPRESSIN
     Indication: RENAL IMPAIRMENT
     Dosage: 0.1 MG, TWICE DAILY
  9. GENOTROPIN [Suspect]
     Active Substance: SOMATROPIN
     Indication: HORMONE THERAPY
     Dosage: 1.8 MG, 1X/DAY
  10. GENOTROPIN [Suspect]
     Active Substance: SOMATROPIN
     Indication: HYPOPITUITARISM
     Dosage: 1.2MG, UNK
     Dates: start: 20180718
  11. FLONASE [Concomitant]
     Active Substance: FLUTICASONE PROPIONATE
     Indication: HYPERSENSITIVITY
     Dosage: 50 MCG, IN EACH NOSTRIL ONCE A DAY
     Route: 045
     Dates: start: 2017

REACTIONS (6)
  - Device issue [Unknown]
  - Product quality issue [Unknown]
  - Poor quality device used [Unknown]
  - Wrong technique in device usage process [Unknown]
  - Drug dose omission by device [Unknown]
  - Device information output issue [Unknown]

NARRATIVE: CASE EVENT DATE: 2017
